FAERS Safety Report 17423716 (Version 1)
Quarter: 2020Q1

REPORT INFORMATION
  Report Type: Spontaneous
  Country: GB (occurrence: GB)
  Receive Date: 20200217
  Receipt Date: 20200217
  Transmission Date: 20200409
  Serious: No
  Sender: FDA-Public Use
  Company Number: GB-ALKEM LABORATORIES LIMITED-GB-ALKEM-2019-10909

PATIENT
  Age: 2 Year
  Sex: Male

DRUGS (11)
  1. DERMOL [Concomitant]
     Active Substance: BENZALKONIUM CHLORIDE\CHLORHEXIDINE HYDROCHLORIDE\ISOPROPYL MYRISTATE\PARAFFIN
     Indication: ILL-DEFINED DISORDER
     Dosage: USE AS DIRECTED
     Route: 065
     Dates: start: 20181009
  2. FUROSEMIDE. [Concomitant]
     Active Substance: FUROSEMIDE
     Indication: ILL-DEFINED DISORDER
     Dosage: 0.5MLS TO BE TAKEN TWICE DAILY
     Route: 065
     Dates: start: 20180731
  3. FLUCLOXACILLIN [Concomitant]
     Active Substance: FLUCLOXACILLIN
     Indication: ILL-DEFINED DISORDER
     Dosage: 1X5ML SPOON 4 TIMES/DAY
     Route: 065
     Dates: start: 20190819, end: 20190824
  4. SPIRONOLACTONE. [Concomitant]
     Active Substance: SPIRONOLACTONE
     Indication: ILL-DEFINED DISORDER
     Dosage: 0.5MLS TO BE TAKEN TWICE DAILY
     Route: 065
     Dates: start: 20180508
  5. CEFALEXIN [Suspect]
     Active Substance: CEPHALEXIN
     Dosage: 125MG/5ML
     Route: 065
     Dates: start: 20180522
  6. CAROBEL [Concomitant]
     Active Substance: CAROB
     Indication: ILL-DEFINED DISORDER
     Dosage: USE AS DIRECTED
     Route: 065
     Dates: start: 20180220
  7. NUTRITIONAL SUPPLEMENT [Concomitant]
     Active Substance: DIETARY SUPPLEMENT
     Indication: ILL-DEFINED DISORDER
     Dosage: USE AS DIRECTED
     Route: 065
     Dates: start: 20180301
  8. EMULSIFYING WAX [Concomitant]
     Indication: ILL-DEFINED DISORDER
     Dosage: USE AS DIRECTED
     Route: 065
     Dates: start: 20181009
  9. ABIDEC MULTIVITAMIN [Concomitant]
     Indication: ILL-DEFINED DISORDER
     Dosage: 0.6ML DAILY
     Route: 065
     Dates: start: 20180123
  10. HYDROCORTISONE. [Concomitant]
     Active Substance: HYDROCORTISONE
     Indication: ILL-DEFINED DISORDER
     Dosage: APPLY ONCE DAILY
     Route: 065
     Dates: start: 20180206
  11. CLOBETASONE BUTYRATE [Concomitant]
     Active Substance: CLOBETASONE BUTYRATE
     Indication: ILL-DEFINED DISORDER
     Dosage: APPLY 1-2 TIMES/DAY
     Route: 065
     Dates: start: 20181009

REACTIONS (1)
  - Rash [Unknown]

NARRATIVE: CASE EVENT DATE: 20191111
